FAERS Safety Report 7963363-6 (Version None)
Quarter: 2011Q4

REPORT INFORMATION
  Report Type: 
  Country: None (occurrence: None)
  Receive Date: 20111205
  Receipt Date: 20111121
  Transmission Date: 20120403
  Serious: Yes (Death)
  Sender: FDA-Public Use
  Company Number: TPA2011A07862

PATIENT
  Age: 78 Year
  Sex: Male

DRUGS (1)
  1. ACTOS [Suspect]
     Dates: start: 20071001

REACTIONS (2)
  - OBSTRUCTIVE UROPATHY [None]
  - UROSEPSIS [None]
